FAERS Safety Report 6757035-3 (Version None)
Quarter: 2010Q2

REPORT INFORMATION
  Report Type: 
  Country: None (occurrence: None)
  Receive Date: 20100604
  Receipt Date: 20100525
  Transmission Date: 20101027
  Serious: No
  Sender: FDA-Public Use
  Company Number: NL-ELI_LILLY_AND_COMPANY-NL201005006828

PATIENT
  Age: 29 Year
  Sex: Male

DRUGS (2)
  1. ZYPREXA [Suspect]
     Indication: MANIA
     Dosage: 15 MG, UNK
  2. CARBAMAZEPINE [Concomitant]

REACTIONS (1)
  - THROMBOCYTOPENIA [None]
